FAERS Safety Report 4304117-1 (Version None)
Quarter: 2004Q1

REPORT INFORMATION
  Report Type: 
  Country: None (occurrence: None)
  Receive Date: 20040224
  Receipt Date: 20040211
  Transmission Date: 20041129
  Serious: Yes (Hospitalization)
  Sender: FDA-Public Use
  Company Number: 03P-083-0244981-00

PATIENT
  Age: 63 Year
  Sex: Female

DRUGS (2)
  1. VALPROATE SODIUM [Suspect]
     Indication: EPILEPSY
     Dosage: 500 MG, 2 IN 1 D, ORAL
     Route: 048
     Dates: start: 20030801, end: 20031030
  2. MATHOINE [Concomitant]

REACTIONS (2)
  - MYASTHENIC SYNDROME [None]
  - RHABDOMYOLYSIS [None]
